FAERS Safety Report 7124761-6 (Version None)
Quarter: 2010Q4

REPORT INFORMATION
  Report Type: 
  Country: None (occurrence: None)
  Receive Date: 20101123
  Receipt Date: 20101123
  Transmission Date: 20110411
  Serious: Yes (Hospitalization)
  Sender: FDA-Public Use
  Company Number: None

PATIENT
  Age: 93 Year
  Sex: Female
  Weight: 43.0917 kg

DRUGS (11)
  1. DIGOXIN [Suspect]
     Dosage: 0.125 MG DAILY PO
     Route: 048
  2. TRAMADOL HCL [Concomitant]
  3. PRANDIN [Concomitant]
  4. ENALAPRIL [Concomitant]
  5. DIGOXIN [Concomitant]
  6. ASPIRIN [Concomitant]
  7. FUROSEMIDE [Concomitant]
  8. OMEPRAZOLE [Concomitant]
  9. GABAPENTIN [Concomitant]
  10. NORVASC [Concomitant]
  11. POTASSIUM CHLORIDE [Concomitant]

REACTIONS (5)
  - ATRIOVENTRICULAR BLOCK COMPLETE [None]
  - CARDIO-RESPIRATORY ARREST [None]
  - HYPOTENSION [None]
  - MEDICATION ERROR [None]
  - MENTAL STATUS CHANGES [None]
